FAERS Safety Report 6931124-2 (Version None)
Quarter: 2010Q3

REPORT INFORMATION
  Report Type: 
  Country: None (occurrence: None)
  Receive Date: 20100818
  Receipt Date: 20100803
  Transmission Date: 20110219
  Serious: Yes (Disabling, Other)
  Sender: FDA-Public Use
  Company Number: PHHY2010FI51125

PATIENT
  Age: 76 Year
  Sex: Female

DRUGS (4)
  1. DIOVAN [Suspect]
     Dosage: 80 MG, QD
     Dates: start: 20060101, end: 20091201
  2. SELOKEN [Concomitant]
     Dosage: 45 MG, QD
  3. PRIORIN [Concomitant]
  4. SILICONE PRODUCTS [Concomitant]

REACTIONS (5)
  - ALOPECIA [None]
  - FATIGUE [None]
  - HAIR DISORDER [None]
  - QUALITY OF LIFE DECREASED [None]
  - SKIN DEPIGMENTATION [None]
